FAERS Safety Report 5024681-7 (Version None)
Quarter: 2006Q2

REPORT INFORMATION
  Report Type: 
  Country: None (occurrence: None)
  Receive Date: 20060613
  Receipt Date: 20040726
  Transmission Date: 20061013
  Serious: No
  Sender: FDA-Public Use
  Company Number: US-BRISTOL-MYERS SQUIBB COMPANY-12652509

PATIENT
  Age: 41 Year
  Sex: Male
  Weight: 68 kg

DRUGS (2)
  1. NADOLOL [Suspect]
     Indication: MITRAL VALVE PROLAPSE
     Dosage: DOSAGE: 1/2 OF A 20MG TABLET TWICE DAILY; SWITCHED FROM GENERIC TO BRAND NAME.
     Route: 048
     Dates: start: 20040525
  2. ZOCOR [Concomitant]

REACTIONS (2)
  - SWELLING [None]
  - URTICARIA [None]
